FAERS Safety Report 6231520-5 (Version None)
Quarter: 2009Q2

REPORT INFORMATION
  Report Type: 
  Country: None (occurrence: None)
  Receive Date: 20090616
  Receipt Date: 20090604
  Transmission Date: 20091009
  Serious: Yes (Hospitalization)
  Sender: FDA-Public Use
  Company Number: B0578526A

PATIENT
  Age: 72 Year
  Sex: Female

DRUGS (3)
  1. CARVEDILOL [Suspect]
     Indication: ATRIAL FIBRILLATION
     Route: 048
     Dates: start: 20050101
  2. BEPRIDIL [Suspect]
     Indication: ATRIAL FIBRILLATION
     Route: 048
     Dates: start: 20050101
  3. ANALGESICS [Suspect]
     Dates: start: 20080201

REACTIONS (8)
  - ALTERED STATE OF CONSCIOUSNESS [None]
  - DRUG RASH WITH EOSINOPHILIA AND SYSTEMIC SYMPTOMS [None]
  - HERPES VIRUS INFECTION [None]
  - IMMUNODEFICIENCY [None]
  - ORAL CANDIDIASIS [None]
  - RASH [None]
  - TOXIC SKIN ERUPTION [None]
  - TYPE 1 DIABETES MELLITUS [None]
